FAERS Safety Report 6307550-1 (Version None)
Quarter: 2009Q3

REPORT INFORMATION
  Report Type: 
  Country: None (occurrence: None)
  Receive Date: 20090810
  Receipt Date: 20090729
  Transmission Date: 20100115
  Serious: Yes (Other)
  Sender: FDA-Public Use
  Company Number: 2008AL009399

PATIENT
  Age: 52 Year
  Sex: Female

DRUGS (25)
  1. DIGOXIN [Suspect]
     Indication: CARDIAC FAILURE CONGESTIVE
     Dosage: 0.125MG, DAILY PO
     Route: 048
  2. LASIX [Concomitant]
  3. MAGNESIUM OXIDE [Concomitant]
  4. ......... [Concomitant]
  5. PROZAC [Concomitant]
  6. ALTACE [Concomitant]
  7. COREG [Concomitant]
  8. HUMULIN R [Concomitant]
  9. DARVOCET [Concomitant]
  10. LANTUS [Concomitant]
  11. TYLENOL (CAPLET) [Concomitant]
  12. LEVAQUIN [Concomitant]
  13. FLAGYL [Concomitant]
  14. POTASSIUM CHLORIDE [Concomitant]
  15. LEVOFLOXACIN [Concomitant]
  16. METRONIDAZOLE [Concomitant]
  17. SUCRALFATE [Concomitant]
  18. SODIUM CHLORIDE [Concomitant]
  19. PANTOPRAZOLE SODIUM [Concomitant]
  20. NYSTATIN [Concomitant]
  21. ACETAMINOPHEN [Concomitant]
  22. CARVEDILOL [Concomitant]
  23. RAMIPRIL [Concomitant]
  24. DIPHENOXYL [Concomitant]
  25. ALDACTONE [Concomitant]

REACTIONS (16)
  - ASTHENIA [None]
  - BLOOD POTASSIUM INCREASED [None]
  - CARDIOMYOPATHY [None]
  - COLD SWEAT [None]
  - DECREASED APPETITE [None]
  - DEHYDRATION [None]
  - GASTROENTERITIS [None]
  - HEART RATE IRREGULAR [None]
  - HYPOTENSION [None]
  - INJURY [None]
  - LOCALISED INFECTION [None]
  - NOCTURIA [None]
  - ORTHOPNOEA [None]
  - PULMONARY HYPERTENSION [None]
  - VENTRICULAR TACHYCARDIA [None]
  - VISUAL IMPAIRMENT [None]
